FAERS Safety Report 19269281 (Version 1)
Quarter: 2021Q2

REPORT INFORMATION
  Report Type: Spontaneous
  Country: US (occurrence: US)
  Receive Date: 20210517
  Receipt Date: 20210517
  Transmission Date: 20210717
  Serious: No
  Sender: FDA-Public Use
  Company Number: US-JNJFOC-20210516178

PATIENT
  Age: 17 Year
  Sex: Male

DRUGS (1)
  1. IMODIUM A?D [Suspect]
     Active Substance: LOPERAMIDE HYDROCHLORIDE
     Indication: DIARRHOEA
     Dosage: 30ML AND 15ML, 60ML 3X TIMES YESTERDAY
     Route: 065

REACTIONS (1)
  - Heart rate irregular [Not Recovered/Not Resolved]
